FAERS Safety Report 4592585-X (Version None)
Quarter: 2005Q1

REPORT INFORMATION
  Report Type: 
  Country: None (occurrence: None)
  Receive Date: 20050222
  Receipt Date: 20050204
  Transmission Date: 20050727
  Serious: Yes (Hospitalization)
  Sender: FDA-Public Use
  Company Number: 2005AP01026

PATIENT
  Age: 63 Year
  Sex: Male

DRUGS (6)
  1. LIGNOCAINE [Suspect]
     Dosage: 10 ML DAILY IV
     Route: 042
     Dates: start: 20030307
  2. ISOVUE [Suspect]
     Dosage: 65 ML DAILY PO
     Route: 048
     Dates: start: 20030307
  3. PRAVASTATIN [Concomitant]
  4. ASPIRIN [Concomitant]
  5. ACETAMINOPHEN [Concomitant]
  6. ATENOLOL [Concomitant]

REACTIONS (3)
  - CHILLS [None]
  - DYSPNOEA [None]
  - TREMOR [None]
